FAERS Safety Report 19182826 (Version 1)
Quarter: 2021Q2

REPORT INFORMATION
  Report Type: Report from Study
  Country: GB (occurrence: GB)
  Receive Date: 20210426
  Receipt Date: 20210426
  Transmission Date: 20210717
  Serious: Yes (Other)
  Sender: FDA-Public Use
  Company Number: NVSC2021GB085240

PATIENT
  Age: 52 Year
  Sex: Female

DRUGS (1)
  1. HYRIMOZ [Suspect]
     Active Substance: ADALIMUMAB-ADAZ
     Indication: RHEUMATOID ARTHRITIS
     Dosage: 40 MG, Q2MO
     Route: 058

REACTIONS (8)
  - Renal pain [Unknown]
  - Back pain [Unknown]
  - Rheumatoid arthritis [Unknown]
  - Chronic kidney disease [Unknown]
  - Product dose omission issue [Unknown]
  - Renal failure [Unknown]
  - Nerve injury [Unknown]
  - Blood pressure increased [Unknown]

NARRATIVE: CASE EVENT DATE: 20210407
